FAERS Safety Report 18294630 (Version 1)
Quarter: 2020Q3

REPORT INFORMATION
  Report Type: Spontaneous
  Country: DE (occurrence: DE)
  Receive Date: 20200922
  Receipt Date: 20200922
  Transmission Date: 20201103
  Serious: Yes (Death, Hospitalization, Other)
  Sender: FDA-Public Use
  Company Number: DE-SA-2020SA253101

PATIENT

DRUGS (7)
  1. METFORMIN HYDROCHLORIDE. [Suspect]
     Active Substance: METFORMIN HYDROCHLORIDE
     Dosage: 1000 MG, 1?0?1?0
     Route: 065
  2. SITAGLIPTIN [Suspect]
     Active Substance: SITAGLIPTIN
     Dosage: 100 MG, 1?0?0?0
     Route: 065
  3. SIMVASTATIN. [Concomitant]
     Active Substance: SIMVASTATIN
     Dosage: 10 MG, 0?0?1?0
     Route: 065
  4. BISOPROLOL [Concomitant]
     Active Substance: BISOPROLOL
     Dosage: 5 MG, 1?0?0?0
     Route: 065
  5. RAMIPRIL. [Concomitant]
     Active Substance: RAMIPRIL
     Dosage: 5 MG, 1?0?0?0
     Route: 065
  6. INSULIN HUMAN NOS [Suspect]
     Active Substance: INSULIN HUMAN
     Dosage: IU, BY/ACCORDING TO VALUE
     Route: 065
  7. TOUJEO [Suspect]
     Active Substance: INSULIN GLARGINE
     Dosage: 18 IU, QD, 0?0?1?0
     Route: 065

REACTIONS (6)
  - Hypoglycaemia [Unknown]
  - Depressed level of consciousness [Unknown]
  - Fall [Unknown]
  - Loss of consciousness [Unknown]
  - Wound [Unknown]
  - General physical health deterioration [Unknown]
